FAERS Safety Report 13445220 (Version 2)
Quarter: 2017Q3

REPORT INFORMATION
  Report Type: Spontaneous
  Country: FR (occurrence: FR)
  Receive Date: 20170414
  Receipt Date: 20170713
  Transmission Date: 20171127
  Serious: Yes (Death, Life-Threatening, Congenital Anomaly)
  Sender: FDA-Public Use
  Company Number: FR-PFIZER INC-2005020330

PATIENT

DRUGS (2)
  1. MIFEGYNE [Suspect]
     Active Substance: MIFEPRISTONE
     Indication: ABORTION INDUCED
     Dosage: 600 MG, SINGLE
     Route: 064
     Dates: start: 20040517, end: 20040517
  2. CYTOTEC [Suspect]
     Active Substance: MISOPROSTOL
     Indication: ABORTION INDUCED
     Dosage: 600 UG, SINGLE
     Route: 064
     Dates: start: 20040519, end: 20040519

REACTIONS (3)
  - Brain malformation [Fatal]
  - Congenital central nervous system anomaly [Unknown]
  - Maternal exposure during pregnancy [Fatal]

NARRATIVE: CASE EVENT DATE: 2004
